FAERS Safety Report 23300287 (Version 1)
Quarter: 2023Q4

REPORT INFORMATION
  Report Type: Spontaneous
  Country: US (occurrence: US)
  Receive Date: 20231215
  Receipt Date: 20231215
  Transmission Date: 20240109
  Serious: No
  Sender: FDA-Public Use
  Company Number: US-SANDOZ-SDZ2023US067588

PATIENT
  Sex: Male

DRUGS (1)
  1. OMNITROPE [Suspect]
     Active Substance: SOMATROPIN
     Indication: Hypopituitarism
     Dosage: 1.8 MG 2 DOSE EVERY N/A N/A
     Route: 058
     Dates: start: 20220126

REACTIONS (2)
  - Rash [Recovering/Resolving]
  - Seasonal allergy [Recovering/Resolving]
